FAERS Safety Report 11515996 (Version 4)
Quarter: 2016Q2

REPORT INFORMATION
  Report Type: Spontaneous
  Country: US (occurrence: US)
  Receive Date: 20150917
  Receipt Date: 20160629
  Transmission Date: 20160815
  Serious: Yes (Other)
  Sender: FDA-Public Use
  Company Number: US-ROCHE-1634859

PATIENT
  Age: 71 Year
  Sex: Female
  Weight: 60.8 kg

DRUGS (14)
  1. ERIVEDGE [Suspect]
     Active Substance: VISMODEGIB
     Route: 048
     Dates: start: 20140715, end: 20150106
  2. FOSAMAX [Concomitant]
     Active Substance: ALENDRONATE SODIUM
     Route: 048
     Dates: start: 20141231, end: 20150109
  3. ERIVEDGE [Suspect]
     Active Substance: VISMODEGIB
     Route: 048
     Dates: end: 20150630
  4. FENOFIBRATE MICRO [Concomitant]
     Active Substance: FENOFIBRATE
  5. TIMOLOL MALEATE. [Concomitant]
     Active Substance: TIMOLOL MALEATE
     Route: 065
  6. PRAVASTATIN [Concomitant]
     Active Substance: PRAVASTATIN\PRAVASTATIN SODIUM
     Route: 065
  7. ERIVEDGE [Suspect]
     Active Substance: VISMODEGIB
     Indication: BASAL CELL CARCINOMA
     Route: 048
     Dates: start: 20150430, end: 20150612
  8. BENICAR HCT [Concomitant]
     Active Substance: HYDROCHLOROTHIAZIDE\OLMESARTAN MEDOXOMIL
     Dosage: 40-12.5 MG
     Route: 048
     Dates: start: 20140624, end: 20150109
  9. ATENOLOL. [Concomitant]
     Active Substance: ATENOLOL
  10. LATANOPROST. [Concomitant]
     Active Substance: LATANOPROST
     Route: 065
  11. CIPROFLOXACIN. [Concomitant]
     Active Substance: CIPROFLOXACIN
     Route: 048
     Dates: end: 20150109
  12. OMEPRAZOLE. [Concomitant]
     Active Substance: OMEPRAZOLE
     Dosage: TAKE 10 MG BY MOUTH ONCE DAILY
     Route: 048
  13. MOXIFLOXACIN. [Concomitant]
     Active Substance: MOXIFLOXACIN
     Dosage: PLACE 1 DROP IN THE AFFECTED EYE(S) FOUR TIMES DA
     Route: 065
  14. REPAGLINIDE. [Concomitant]
     Active Substance: REPAGLINIDE
     Dosage: TAKE 2 MG BY MOUTH THREE TIMES DAILY BEFORE MEALS
     Route: 048

REACTIONS (4)
  - Renal failure [Recovered/Resolved]
  - Hepatotoxicity [Unknown]
  - Hepatitis acute [Recovered/Resolved]
  - Acute kidney injury [Recovered/Resolved]

NARRATIVE: CASE EVENT DATE: 20150106
